FAERS Safety Report 5675755-9 (Version None)
Quarter: 2008Q1

REPORT INFORMATION
  Report Type: 
  Country: None (occurrence: None)
  Receive Date: 20080318
  Receipt Date: 20080310
  Transmission Date: 20080703
  Serious: Yes (Other)
  Sender: FDA-Public Use
  Company Number: CHPA2008US04391

PATIENT
  Age: 67 Year
  Sex: Female
  Weight: 67.1 kg

DRUGS (6)
  1. GAS-X CHEWABLE TABLETS CHERRY CREME (NCH) (SIMETHICONE) CHEWABLE TABLE [Suspect]
     Indication: FLATULENCE
     Dosage: 160MG, TID, FOR 3-4 MONTHS, ORAL; NOT EVERYDAY, ORAL
     Route: 048
  2. PEPTO-BISMOL (BISMULTH SUBSALICYLATE) [Concomitant]
  3. ASPIRIN (ACETYLSALCYIC ACID) [Concomitant]
  4. BENAZEPRIL HCL [Concomitant]
  5. ATIVAN [Concomitant]
  6. METOPROLOL TARTRATE [Concomitant]

REACTIONS (2)
  - CHOLELITHIASIS [None]
  - GALLBLADDER OPERATION [None]
